FAERS Safety Report 24654856 (Version 1)
Quarter: 2024Q4

REPORT INFORMATION
  Report Type: Spontaneous
  Country: DE (occurrence: DE)
  Receive Date: 20241122
  Receipt Date: 20241122
  Transmission Date: 20250115
  Serious: Yes (Other)
  Sender: TEVA
  Company Number: None

PATIENT
  Age: 54 Year
  Sex: Female
  Weight: 67 kg

DRUGS (1)
  1. CIPROFLOXACIN [Suspect]
     Active Substance: CIPROFLOXACIN
     Indication: Cystitis noninfective
     Dosage: 2X500MG DAILY
     Route: 048
     Dates: start: 20220217, end: 20220219

REACTIONS (13)
  - Rheumatoid arthritis [Recovered/Resolved with Sequelae]
  - Anxiety [Recovering/Resolving]
  - Suicidal ideation [Recovering/Resolving]
  - Myalgia [Recovering/Resolving]
  - Myalgia [Recovered/Resolved with Sequelae]
  - Tendonitis [Recovered/Resolved with Sequelae]
  - Palpitations [Recovering/Resolving]
  - Chest discomfort [Recovering/Resolving]
  - Tendon pain [Recovered/Resolved with Sequelae]
  - Arthralgia [Recovering/Resolving]
  - Angina pectoris [Recovering/Resolving]
  - Blood pressure increased [Recovering/Resolving]
  - Depression [Recovering/Resolving]

NARRATIVE: CASE EVENT DATE: 20220101
